FAERS Safety Report 4756803-7 (Version None)
Quarter: 2005Q3

REPORT INFORMATION
  Report Type: 
  Country: None (occurrence: None)
  Receive Date: 20050830
  Receipt Date: 20050713
  Transmission Date: 20060218
  Serious: Yes (Hospitalization, Other)
  Sender: FDA-Public Use
  Company Number: US-BRISTOL-MYERS SQUIBB COMPANY-13038435

PATIENT
  Age: 77 Year
  Sex: Male

DRUGS (15)
  1. CETUXIMAB [Suspect]
     Indication: NON-SMALL CELL LUNG CANCER
     Dosage: ON 4TH COURSE
     Route: 042
     Dates: start: 20050329
  2. CARBOPLATIN [Suspect]
     Indication: NON-SMALL CELL LUNG CANCER
     Dosage: ON 4TH COURSE, THERAPY START DATE 04-APR-05.
     Route: 042
     Dates: start: 20050705, end: 20050705
  3. PACLITAXEL [Suspect]
     Indication: NON-SMALL CELL LUNG CANCER
     Dosage: ON 4TH COURSE. GIVEN WEEKLY TIMES 3 DOSES. THERAPY START DATE 04-APR-05.
     Route: 042
     Dates: start: 20050705, end: 20050705
  4. DELSYM [Concomitant]
     Dates: start: 20050419
  5. IMODIUM [Concomitant]
     Dates: start: 20050414
  6. VERAPAMIL [Concomitant]
     Dates: start: 20030101
  7. DIOVAN [Concomitant]
     Dates: start: 20030101
  8. LASIX [Concomitant]
     Dates: start: 20000101
  9. ZANTAC [Concomitant]
     Dates: start: 20050503
  10. MAGNESIUM [Concomitant]
     Dates: start: 20050611
  11. CIPROFLOXACIN HCL [Concomitant]
     Dates: start: 20050613, end: 20050622
  12. ADVAIR DISKUS 100/50 [Concomitant]
     Dates: start: 20050101
  13. UNISOM [Concomitant]
     Dates: start: 20050101
  14. MEGACE [Concomitant]
     Dates: start: 20050613
  15. ARANESP [Concomitant]
     Dates: start: 20050701

REACTIONS (17)
  - ASTHENIA [None]
  - ATRIAL TACHYCARDIA [None]
  - BLOOD CALCIUM DECREASED [None]
  - BLOOD CREATININE INCREASED [None]
  - BLOOD MAGNESIUM DECREASED [None]
  - BLOOD UREA DECREASED [None]
  - BUNDLE BRANCH BLOCK RIGHT [None]
  - DEHYDRATION [None]
  - DIARRHOEA [None]
  - DIZZINESS [None]
  - DYSPNOEA [None]
  - ELECTROCARDIOGRAM QT CORRECTED INTERVAL PROLONGED [None]
  - ELECTROCARDIOGRAM ST-T CHANGE [None]
  - HEART RATE DECREASED [None]
  - ORAL INTAKE REDUCED [None]
  - SUPRAVENTRICULAR EXTRASYSTOLES [None]
  - VENTRICULAR EXTRASYSTOLES [None]
